FAERS Safety Report 5131774-2 (Version None)
Quarter: 2006Q4

REPORT INFORMATION
  Report Type: 
  Country: None (occurrence: None)
  Receive Date: 20061020
  Receipt Date: 20061005
  Transmission Date: 20070319
  Serious: Yes (Other)
  Sender: FDA-Public Use
  Company Number: JP-MERCK-0610USA10834

PATIENT
  Age: 36 Year
  Sex: Male
  Weight: 72 kg

DRUGS (1)
  1. PROPECIA [Suspect]
     Indication: MALE PATTERN BALDNESS
     Route: 048
     Dates: start: 20060831, end: 20060923

REACTIONS (1)
  - SEMEN DISCOLOURATION [None]
